FAERS Safety Report 5458669-9 (Version None)
Quarter: 2007Q3

REPORT INFORMATION
  Report Type: 
  Country: None (occurrence: None)
  Receive Date: 20070919
  Receipt Date: 20070416
  Transmission Date: 20080115
  Serious: No
  Sender: FDA-Public Use
  Company Number: US-ASTRAZENECA-2007UW07401

PATIENT
  Age: 47 Year
  Sex: Female
  Weight: 81.2 kg

DRUGS (3)
  1. SEROQUEL [Suspect]
     Indication: DEPRESSION
     Route: 048
  2. REMERON [Concomitant]
  3. LIBRIUM [Concomitant]

REACTIONS (4)
  - DENTAL CARIES [None]
  - TOOTH DISORDER [None]
  - TOOTH LOSS [None]
  - WEIGHT INCREASED [None]
